FAERS Safety Report 23884442 (Version 1)
Quarter: 2024Q2

REPORT INFORMATION
  Report Type: Report from Study
  Country: US (occurrence: None)
  Receive Date: 20240522
  Receipt Date: 20240522
  Transmission Date: 20240715
  Serious: Yes (Other)
  Sender: FDA-Public Use
  Company Number: 2024A113518

PATIENT
  Sex: Female
  Weight: 73.8 kg

DRUGS (21)
  1. CALQUENCE [Suspect]
     Active Substance: ACALABRUTINIB
     Indication: Chronic lymphocytic leukaemia
     Dosage: 100 MG TAB BY MOUTH EVERY 12 HOURS EVERY OTHER DAY.
     Route: 048
     Dates: start: 20240212
  2. ACYCLOVIR [Concomitant]
     Active Substance: ACYCLOVIR
  3. ALLOPURINOL [Concomitant]
     Active Substance: ALLOPURINOL
  4. AMITRIPTYLINE [Concomitant]
     Active Substance: AMITRIPTYLINE
  5. ASPIRIN [Concomitant]
     Active Substance: ASPIRIN
  6. ATORVASTATIN [Concomitant]
     Active Substance: ATORVASTATIN
  7. BACTRIM [Concomitant]
     Active Substance: SULFAMETHOXAZOLE\TRIMETHOPRIM
  8. BENADRYL [Concomitant]
     Active Substance: DIPHENHYDRAMINE HYDROCHLORIDE
  9. FISH OIL [Concomitant]
     Active Substance: FISH OIL
  10. MELATONIN [Concomitant]
     Active Substance: MELATONIN
  11. VITAMIN C [Concomitant]
     Active Substance: ASCORBIC ACID
  12. VITAMIN D3 [Concomitant]
     Active Substance: CHOLECALCIFEROL
  13. DIFLUCAN [Concomitant]
     Active Substance: FLUCONAZOLE
  14. EXCEDRIN [Concomitant]
     Active Substance: ACETAMINOPHEN\ASPIRIN\CAFFEINE
  15. IRBESARTAN [Concomitant]
     Active Substance: IRBESARTAN
  16. LEVALBUTEROL [Concomitant]
     Active Substance: LEVALBUTEROL
  17. LINZESS [Concomitant]
     Active Substance: LINACLOTIDE
  18. METHOCARBAMOL [Concomitant]
     Active Substance: METHOCARBAMOL
  19. METOPROLOL [Concomitant]
     Active Substance: METOPROLOL
  20. OMEPRAZOLE [Concomitant]
     Active Substance: DONEPEZIL HYDROCHLORIDE\OMEPRAZOLE\OMEPRAZOLE MAGNESIUM
  21. TYLENOL [Concomitant]
     Active Substance: ACETAMINOPHEN

REACTIONS (5)
  - Fluid retention [Unknown]
  - Palpitations [Not Recovered/Not Resolved]
  - Peripheral swelling [Not Recovered/Not Resolved]
  - Dysphagia [Not Recovered/Not Resolved]
  - Weight increased [Unknown]
